FAERS Safety Report 5604668-3 (Version None)
Quarter: 2008Q1

REPORT INFORMATION
  Report Type: 
  Country: None (occurrence: None)
  Receive Date: 20080124
  Receipt Date: 20080124
  Transmission Date: 20080703
  Serious: Yes (Death)
  Sender: FDA-Public Use
  Company Number: None

PATIENT
  Sex: Male
  Weight: 93.441 kg

DRUGS (1)
  1. EPTIFIBATIDE 0.75ML SCHERING-PLOUGH [Suspect]
     Indication: MYOCARDIAL ISCHAEMIA
     Dosage: 2MCG/KG PER MINUTE IV DRIP
     Route: 041
     Dates: start: 20060903, end: 20060908

REACTIONS (3)
  - HAEMORRHAGE INTRACRANIAL [None]
  - INFUSION RELATED REACTION [None]
  - THROMBOCYTOPENIA [None]
